FAERS Safety Report 9205646 (Version 1)
Quarter: 2013Q2

REPORT INFORMATION
  Report Type: Spontaneous
  Country: US (occurrence: US)
  Receive Date: 20130403
  Receipt Date: 20130403
  Transmission Date: 20140414
  Serious: No
  Sender: FDA-Public Use
  Company Number: US-BIOGENIDEC-2013BI028847

PATIENT
  Age: 43 Year
  Sex: Female

DRUGS (1)
  1. TYSABRI [Suspect]
     Indication: MULTIPLE SCLEROSIS
     Route: 042
     Dates: start: 20121011

REACTIONS (4)
  - Ear discomfort [Recovered/Resolved]
  - Sensory disturbance [Recovered/Resolved]
  - Headache [Recovered/Resolved]
  - Oropharyngeal discomfort [Recovered/Resolved]
